FAERS Safety Report 9095714 (Version 4)
Quarter: 2017Q3

REPORT INFORMATION
  Report Type: Spontaneous
  Country: GB (occurrence: GB)
  Receive Date: 20130220
  Receipt Date: 20170729
  Transmission Date: 20171128
  Serious: Yes (Disabling, Other)
  Sender: FDA-Public Use
  Company Number: GB-ACCORD-016454

PATIENT
  Age: 73 Year
  Sex: Male
  Weight: 80.9 kg

DRUGS (8)
  1. RAMIPRIL. [Concomitant]
     Active Substance: RAMIPRIL
  2. ASPIRIN. [Concomitant]
     Active Substance: ASPIRIN
     Dates: start: 20121216
  3. DIPYRIDAMOLE. [Concomitant]
     Active Substance: DIPYRIDAMOLE
     Dates: start: 20121215
  4. MICONAZOLE. [Interacting]
     Active Substance: MICONAZOLE
     Indication: ORAL FUNGAL INFECTION
     Dosage: APPLIED TO INFECTED AREA AS PRESCRIBED
     Route: 061
     Dates: start: 20120713, end: 20120720
  5. SIMVASTATIN. [Suspect]
     Active Substance: SIMVASTATIN
     Indication: PRODUCT USED FOR UNKNOWN INDICATION
  6. ATENOLOL/ATENOLOL HYDROCHLORIDE [Concomitant]
  7. BENDROFLUMETHIAZIDE [Concomitant]
     Active Substance: BENDROFLUMETHIAZIDE
  8. CLOPIDOGREL [Concomitant]
     Active Substance: CLOPIDOGREL BISULFATE
     Dates: start: 20121216

REACTIONS (2)
  - Labelled drug-drug interaction medication error [Unknown]
  - Ocular myasthenia [Not Recovered/Not Resolved]

NARRATIVE: CASE EVENT DATE: 20120807
